FAERS Safety Report 6809502-1 (Version None)
Quarter: 2010Q2

REPORT INFORMATION
  Report Type: 
  Country: None (occurrence: None)
  Receive Date: 20100630
  Receipt Date: 20100624
  Transmission Date: 20101027
  Serious: Yes (Disabling)
  Sender: FDA-Public Use
  Company Number: US-BAXTER-2010BH012743

PATIENT
  Age: 70 Year
  Sex: Female
  Weight: 80 kg

DRUGS (3)
  1. ARALAST [Suspect]
     Indication: ALPHA-1 ANTI-TRYPSIN DEFICIENCY
     Route: 042
     Dates: start: 20100329, end: 20100425
  2. ARALAST [Suspect]
     Route: 042
     Dates: start: 20100426, end: 20100426
  3. ARALAST [Suspect]
     Route: 042
     Dates: start: 20100503, end: 20100503

REACTIONS (2)
  - DIARRHOEA [None]
  - FATIGUE [None]
